FAERS Safety Report 24266361 (Version 1)
Quarter: 2024Q3

REPORT INFORMATION
  Report Type: Spontaneous
  Country: CN (occurrence: CN)
  Receive Date: 20240830
  Receipt Date: 20240830
  Transmission Date: 20241016
  Serious: Yes (Other)
  Sender: BOEHRINGER INGELHEIM
  Company Number: CN-BoehringerIngelheim-2024-BI-047579

PATIENT
  Age: 66 Year
  Sex: Male

DRUGS (2)
  1. AFATINIB [Suspect]
     Active Substance: AFATINIB
     Indication: Squamous cell carcinoma of lung
     Dosage: DAILY DOSE: 40 MILLIGRAM(S)
     Dates: start: 20220815
  2. AFATINIB [Suspect]
     Active Substance: AFATINIB
     Indication: EGFR gene mutation
     Dosage: DAILY DOSE: 30 MILLIGRAM(S)

REACTIONS (7)
  - Malignant neoplasm progression [Unknown]
  - Diarrhoea [Unknown]
  - Quality of life decreased [Unknown]
  - Therapy partial responder [Unknown]
  - Nausea [Unknown]
  - White blood cell count decreased [Unknown]
  - Neutrophil count decreased [Unknown]

NARRATIVE: CASE EVENT DATE: 20220901
